FAERS Safety Report 19511205 (Version 1)
Quarter: 2021Q3

REPORT INFORMATION
  Report Type: Spontaneous
  Country: US (occurrence: US)
  Receive Date: 20210708
  Receipt Date: 20210708
  Transmission Date: 20211014
  Serious: Yes (Hospitalization)
  Sender: FDA-Public Use
  Company Number: None

PATIENT
  Age: 78 Year
  Sex: Female

DRUGS (1)
  1. SANDOSTATIN LAR DEPOT [Suspect]
     Active Substance: OCTREOTIDE ACETATE
     Indication: IRON DEFICIENCY ANAEMIA
     Route: 030
     Dates: start: 20181031

REACTIONS (2)
  - Haemoglobin abnormal [None]
  - Transfusion [None]

NARRATIVE: CASE EVENT DATE: 20210617
